FAERS Safety Report 17101904 (Version 1)
Quarter: 2019Q4

REPORT INFORMATION
  Report Type: Spontaneous
  Country: DK (occurrence: DK)
  Receive Date: 20191202
  Receipt Date: 20191202
  Transmission Date: 20200122
  Serious: Yes (Other)
  Sender: FDA-Public Use
  Company Number: DK-B.I. PHARMACEUTICALS,INC./RIDGEFIELD-2019-12-116130

PATIENT
  Age: 2 Year
  Sex: Male

DRUGS (13)
  1. SERENASE (HALOPERIDOL) [Suspect]
     Active Substance: HALOPERIDOL
     Indication: SLEEP DISORDER THERAPY
     Route: 065
  2. FENTANYL CITRATE. [Suspect]
     Active Substance: FENTANYL CITRATE
     Indication: SEDATION
     Route: 065
  3. FENTANYL CITRATE. [Suspect]
     Active Substance: FENTANYL CITRATE
     Indication: SLEEP DISORDER THERAPY
  4. KETAMINE [Suspect]
     Active Substance: KETAMINE
     Indication: SLEEP DISORDER THERAPY
     Route: 065
  5. LEVOMEPROMAZINE [Suspect]
     Active Substance: LEVOMEPROMAZINE
     Indication: SLEEP DISORDER THERAPY
     Route: 065
  6. MORPHINE [Suspect]
     Active Substance: MORPHINE
     Indication: SLEEP DISORDER THERAPY
     Route: 065
  7. PROMETHAZINE [Suspect]
     Active Substance: PROMETHAZINE HYDROCHLORIDE
     Indication: SLEEP DISORDER THERAPY
     Route: 065
  8. PHENOBARBITAL. [Suspect]
     Active Substance: PHENOBARBITAL
     Indication: SLEEP DISORDER THERAPY
     Route: 065
  9. CATAPRESAN [Suspect]
     Active Substance: CLONIDINE
     Indication: SLEEP DISORDER THERAPY
     Route: 065
  10. THIOPENTAL [Suspect]
     Active Substance: THIOPENTAL
     Indication: SLEEP DISORDER THERAPY
     Route: 065
  11. PROPOFOL. [Suspect]
     Active Substance: PROPOFOL
     Indication: SLEEP DISORDER THERAPY
     Route: 065
  12. MIDAZOLAM [Suspect]
     Active Substance: MIDAZOLAM HYDROCHLORIDE
     Indication: SLEEP DISORDER THERAPY
     Route: 065
  13. RISPERDAL [Suspect]
     Active Substance: RISPERIDONE
     Indication: SLEEP DISORDER THERAPY
     Route: 065

REACTIONS (5)
  - Product use in unapproved indication [Unknown]
  - Extrapyramidal disorder [Unknown]
  - Product use issue [Unknown]
  - Off label use [Unknown]
  - Agitation [Unknown]
